FAERS Safety Report 4716243-3 (Version None)
Quarter: 2005Q2

REPORT INFORMATION
  Report Type: 
  Country: None (occurrence: None)
  Receive Date: 20050630
  Receipt Date: 20050204
  Transmission Date: 20051028
  Serious: Yes (Hospitalization, Disabling, Other)
  Sender: FDA-Public Use
  Company Number: USA050289940

PATIENT
  Age: 62 Year
  Sex: Male

DRUGS (4)
  1. INSULIN [Suspect]
     Indication: DIABETES MELLITUS
  2. HUMALOG [Suspect]
     Indication: DIABETES MELLITUS
     Dates: start: 20041201
  3. NOVOLOG [Concomitant]
  4. LANTUS [Concomitant]

REACTIONS (3)
  - AGITATION [None]
  - EMOTIONAL DISTRESS [None]
  - NEUROPATHIC ARTHROPATHY [None]
